FAERS Safety Report 12922570 (Version 1)
Quarter: 2016Q4

REPORT INFORMATION
  Report Type: Spontaneous
  Country: CN (occurrence: CN)
  Receive Date: 20161109
  Receipt Date: 20161109
  Transmission Date: 20170207
  Serious: Yes (Other)
  Sender: FDA-Public Use
  Company Number: CN-ASTRAZENECA-2016SF17475

PATIENT
  Age: 60 Year
  Sex: Male
  Weight: 80 kg

DRUGS (3)
  1. TICAGRELOR [Suspect]
     Active Substance: TICAGRELOR
     Indication: ACUTE MYOCARDIAL INFARCTION
     Route: 048
     Dates: start: 20160325, end: 20160330
  2. ASPIRIN. [Suspect]
     Active Substance: ASPIRIN
     Indication: ACUTE MYOCARDIAL INFARCTION
     Route: 048
     Dates: start: 20160325, end: 20160330
  3. ENOXAPARIN SODIUM. [Suspect]
     Active Substance: ENOXAPARIN SODIUM
     Indication: ACUTE MYOCARDIAL INFARCTION
     Route: 058
     Dates: start: 20160325, end: 20160330

REACTIONS (3)
  - Haematemesis [Recovering/Resolving]
  - Shock haemorrhagic [Recovering/Resolving]
  - Gastrointestinal haemorrhage [Recovering/Resolving]
